FAERS Safety Report 11737693 (Version 1)
Quarter: 2015Q4

REPORT INFORMATION
  Report Type: Spontaneous
  Country: FR (occurrence: FR)
  Receive Date: 20151113
  Receipt Date: 20151113
  Transmission Date: 20160304
  Serious: Yes (Hospitalization)
  Sender: FDA-Public Use
  Company Number: FR-TEVA-607610ISR

PATIENT
  Age: 82 Year
  Sex: Female

DRUGS (14)
  1. RAMIPRIL. [Suspect]
     Active Substance: RAMIPRIL
     Dosage: 10 MILLIGRAM DAILY; LONG-STANDING TREATMENT
     Route: 048
  2. OGASTORO [Suspect]
     Active Substance: LANSOPRAZOLE
     Dosage: 30 MILLIGRAM DAILY;
     Dates: start: 20151007, end: 20151009
  3. KARDEGIC [Concomitant]
     Active Substance: ASPIRIN LYSINE
  4. SMECTA [Suspect]
     Active Substance: MONTMORILLONITE
     Dosage: 3 DOSAGE FORMS DAILY;
     Dates: start: 20151003, end: 20151009
  5. CELIPROLOL [Concomitant]
     Active Substance: CELIPROLOL
  6. SIMVASTATINE [Concomitant]
     Active Substance: SIMVASTATIN
  7. VOGALENE [Suspect]
     Active Substance: METOPIMAZINE
     Dosage: 3 DOSAGE FORMS DAILY; FORM: ORAL LYOPHILISATE
     Route: 048
     Dates: start: 20151003, end: 20151009
  8. ZOPICLONE [Concomitant]
     Active Substance: ZOPICLONE
  9. TIORFANOR [Suspect]
     Active Substance: RACECADOTRIL
     Dosage: 300 MILLIGRAM DAILY;
     Route: 048
     Dates: start: 20151007, end: 20151009
  10. PROTHIADEN [Concomitant]
     Active Substance: DOTHIEPIN HYDROCHLORIDE
  11. SPASFON [Suspect]
     Active Substance: PHLOROGLUCINOL
     Dosage: 3 DOSAGE FORMS DAILY;
     Route: 048
     Dates: start: 20151007, end: 20151009
  12. NORDAZ [Concomitant]
     Active Substance: NORDAZEPAM
  13. IBUPROFEN. [Suspect]
     Active Substance: IBUPROFEN
     Dosage: 400 MILLIGRAM DAILY;
     Route: 048
     Dates: start: 20151003, end: 20151009
  14. EFFERALGAN [Suspect]
     Active Substance: ACETAMINOPHEN
     Dosage: 3 GRAM DAILY;
     Route: 048
     Dates: start: 20151003, end: 20151009

REACTIONS (3)
  - Acute kidney injury [Recovering/Resolving]
  - Hypovolaemia [Not Recovered/Not Resolved]
  - Dehydration [Not Recovered/Not Resolved]

NARRATIVE: CASE EVENT DATE: 20151009
